FAERS Safety Report 22059099 (Version 1)
Quarter: 2023Q1

REPORT INFORMATION
  Report Type: Spontaneous
  Country: FR (occurrence: FR)
  Receive Date: 20230303
  Receipt Date: 20230303
  Transmission Date: 20230418
  Serious: Yes (Other)
  Sender: FDA-Public Use
  Company Number: None

PATIENT
  Age: 34 Year
  Sex: Female

DRUGS (1)
  1. AMOXICILLIN [Suspect]
     Active Substance: AMOXICILLIN
     Indication: Premature rupture of membranes
     Route: 065
     Dates: start: 20230131, end: 20230131

REACTIONS (3)
  - Anaphylactic reaction [Recovered/Resolved]
  - Foetal arrhythmia [Not Recovered/Not Resolved]
  - Encephalopathy neonatal [Not Recovered/Not Resolved]

NARRATIVE: CASE EVENT DATE: 20230131
